FAERS Safety Report 5764201-2 (Version None)
Quarter: 2008Q2

REPORT INFORMATION
  Report Type: 
  Country: None (occurrence: None)
  Receive Date: 20080605
  Receipt Date: 20080521
  Transmission Date: 20081010
  Serious: Yes (Hospitalization)
  Sender: FDA-Public Use
  Company Number: 2008BI003794

PATIENT
  Age: 56 Year
  Sex: Female

DRUGS (16)
  1. AVONEX [Suspect]
     Indication: MULTIPLE SCLEROSIS
     Dosage: 30 UG; QW;
     Dates: start: 20061129
  2. ACTOS [Concomitant]
  3. CYMBALTA [Concomitant]
  4. ESTRADIAL [Concomitant]
  5. FURADANTIN [Concomitant]
  6. GLUCOPHAGE [Concomitant]
  7. LACTULOSE [Concomitant]
  8. LIDODERM [Concomitant]
  9. LISINOPRIL [Concomitant]
  10. MYLICON [Concomitant]
  11. NASAREL [Concomitant]
  12. SYNTHROID [Concomitant]
  13. TOPAMAX [Concomitant]
  14. XALATAN [Concomitant]
  15. ZANAFLEX [Concomitant]
  16. KLONOPIN [Concomitant]

REACTIONS (2)
  - CHOLELITHIASIS [None]
  - PANCREATITIS [None]
